FAERS Safety Report 7225299-8 (Version None)
Quarter: 2011Q1

REPORT INFORMATION
  Report Type: 
  Country: None (occurrence: None)
  Receive Date: 20110113
  Receipt Date: 20110104
  Transmission Date: 20110831
  Serious: Yes (Other)
  Sender: FDA-Public Use
  Company Number: CH-ACTELION-A-CH2011-43457

PATIENT
  Age: 17 Year
  Sex: Female
  Weight: 34 kg

DRUGS (2)
  1. TRACLEER [Suspect]
     Indication: PULMONARY ARTERIAL HYPERTENSION
     Dosage: UNK , UNK
     Route: 048
  2. DIURETICS [Concomitant]

REACTIONS (7)
  - CYANOSIS [None]
  - CORONARY ARTERIAL STENT INSERTION [None]
  - PROTEIN-LOSING GASTROENTEROPATHY [None]
  - OXYGEN SATURATION DECREASED [None]
  - CARDIAC OPERATION [None]
  - PULMONARY ARTERIAL PRESSURE INCREASED [None]
  - SYSTEMIC-PULMONARY ARTERY SHUNT [None]
